FAERS Safety Report 10070111 (Version 1)
Quarter: 2014Q2

REPORT INFORMATION
  Report Type: Spontaneous
  Country: US (occurrence: US)
  Receive Date: 20140410
  Receipt Date: 20140410
  Transmission Date: 20141212
  Serious: No
  Sender: FDA-Public Use
  Company Number: US-PFIZER INC-2014098547

PATIENT
  Age: 66 Year
  Sex: Male
  Weight: 140 kg

DRUGS (1)
  1. VFEND [Suspect]
     Indication: PNEUMONIA
     Dosage: UNK

REACTIONS (1)
  - Cough [Unknown]
